FAERS Safety Report 8998522 (Version 1)
Quarter: 2013Q1

REPORT INFORMATION
  Report Type: Spontaneous
  Country: AU (occurrence: AU)
  Receive Date: 20130103
  Receipt Date: 20130103
  Transmission Date: 20140127
  Serious: Yes (Death, Hospitalization)
  Sender: FDA-Public Use
  Company Number: AU-ROCHE-1176246

PATIENT
  Age: 62 Year
  Sex: Male

DRUGS (5)
  1. METALYSE [Suspect]
     Indication: ACUTE MYOCARDIAL INFARCTION
     Route: 042
     Dates: start: 20080712, end: 20080712
  2. NIFEDINE (AUSTRALIA) [Concomitant]
     Route: 065
  3. METFORMIN [Concomitant]
  4. LOSEC (AUSTRALIA) [Concomitant]
  5. METOPROLOL [Concomitant]
     Route: 065

REACTIONS (2)
  - Aortic dissection rupture [Fatal]
  - Haemorrhage intracranial [Fatal]
